FAERS Safety Report 10788286 (Version 1)
Quarter: 2015Q1

REPORT INFORMATION
  Report Type: Spontaneous
  Country: US (occurrence: None)
  Receive Date: 20150210
  Receipt Date: 20150210
  Transmission Date: 20150721
  Serious: Yes (Other)
  Sender: FDA-Public Use
  Company Number: 2702748

PATIENT
  Age: 37 Year
  Sex: Male
  Weight: 177.5 kg

DRUGS (2)
  1. STERILE WATER FOR INJECTION [Suspect]
     Active Substance: WATER
     Indication: MEDICATION DILUTION
  2. VANCOMYCIN HYDROCHLORIDE FOR INJECTION USP (VANCOMYCIN HYDROCHLORIDE) [Suspect]
     Active Substance: VANCOMYCIN HYDROCHLORIDE
     Indication: CELLULITIS
     Route: 042
     Dates: start: 20141213, end: 20141213

REACTIONS (5)
  - Blood creatinine increased [None]
  - Nephropathy toxic [None]
  - Product colour issue [None]
  - Poor quality drug administered [None]
  - Product contamination [None]
